FAERS Safety Report 18751305 (Version 3)
Quarter: 2022Q1

REPORT INFORMATION
  Report Type: Spontaneous
  Country: IT (occurrence: IT)
  Receive Date: 20210118
  Receipt Date: 20220113
  Transmission Date: 20220424
  Serious: Yes (Other)
  Sender: FDA-Public Use
  Company Number: IT-ASTELLAS-2020US045777

PATIENT
  Age: 47 Year
  Sex: Male

DRUGS (15)
  1. LEUPROLIDE ACETATE [Suspect]
     Active Substance: LEUPROLIDE ACETATE
     Indication: Breast cancer stage III
     Dosage: 3.75 MILLIGRAM, MONTHLY
     Route: 065
     Dates: start: 201810
  2. PALBOCICLIB [Suspect]
     Active Substance: PALBOCICLIB
     Indication: Breast cancer stage III
     Dosage: 100 MILLIGRAM
     Route: 065
     Dates: start: 201810, end: 201810
  3. PALBOCICLIB [Suspect]
     Active Substance: PALBOCICLIB
     Dosage: 125 MILLIGRAM, QD
     Route: 065
     Dates: start: 201810
  4. LETROZOLE [Suspect]
     Active Substance: LETROZOLE
     Indication: Breast cancer stage III
     Dosage: 2.5 MILLIGRAM, QD
     Route: 065
     Dates: start: 201810
  5. EVEROLIMUS [Suspect]
     Active Substance: EVEROLIMUS
     Indication: Breast cancer stage III
     Route: 065
     Dates: start: 20170926, end: 20180207
  6. GEMCITABINE [Concomitant]
     Active Substance: GEMCITABINE
     Indication: Breast cancer stage III
     Dates: start: 20180207, end: 20181018
  7. CARBOPLATIN [Concomitant]
     Active Substance: CARBOPLATIN
     Indication: Breast cancer stage III
     Dates: start: 20180207, end: 20181018
  8. PACLITAXEL [Concomitant]
     Active Substance: PACLITAXEL
     Indication: Breast cancer stage III
     Dates: start: 20150127, end: 20151001
  9. ERIBULIN [Concomitant]
     Active Substance: ERIBULIN
     Indication: Breast cancer stage III
     Dates: start: 20150601, end: 20151013
  10. FULVESTRANT [Concomitant]
     Active Substance: FULVESTRANT
     Indication: Breast cancer stage III
     Dates: start: 20161202, end: 20170701
  11. TAMOXIFEN [Concomitant]
     Active Substance: TAMOXIFEN
     Indication: Breast cancer stage III
     Dates: start: 20141001, end: 20150601
  12. VINORELBINE [Concomitant]
     Active Substance: VINORELBINE TARTRATE
     Indication: Breast cancer stage III
     Dates: start: 20131001, end: 20140127
  13. CAPECITABINE [Concomitant]
     Active Substance: CAPECITABINE
     Indication: Breast cancer stage III
     Dates: start: 20131001, end: 20140127
  14. EXEMESTANE [Concomitant]
     Active Substance: EXEMESTANE
     Indication: Breast cancer stage III
     Dates: start: 201007, end: 201310
  15. EXEMESTANE [Concomitant]
     Active Substance: EXEMESTANE
     Dates: start: 20170926, end: 20180207

REACTIONS (7)
  - Neutropenia [Unknown]
  - Thrombocytopenia [Unknown]
  - Drug ineffective [Unknown]
  - Pneumonitis [Unknown]
  - Stomatitis [Unknown]
  - Product use in unapproved indication [Unknown]
  - Asthenia [Unknown]

NARRATIVE: CASE EVENT DATE: 20180101
